FAERS Safety Report 24552069 (Version 1)
Quarter: 2024Q4

REPORT INFORMATION
  Report Type: Spontaneous
  Country: US (occurrence: US)
  Receive Date: 20241026
  Receipt Date: 20241026
  Transmission Date: 20250114
  Serious: Yes (Death, Other)
  Sender: AMGEN
  Company Number: US-AMGEN-USASP2024206880

PATIENT

DRUGS (1)
  1. FILGRASTIM [Suspect]
     Active Substance: FILGRASTIM
     Indication: Prophylaxis
     Dosage: UNK, 10 MICROGRAM/KG/DAY AND 05 MICROGRAM/KG/DAY
     Route: 065

REACTIONS (14)
  - Death [Fatal]
  - Febrile neutropenia [Unknown]
  - Atrial fibrillation [Unknown]
  - Bone pain [Unknown]
  - Thrombocytopenia [Unknown]
  - Neutropenia [Unknown]
  - Infection [Unknown]
  - Dehydration [Unknown]
  - Nausea [Unknown]
  - Vomiting [Unknown]
  - Anaemia [Unknown]
  - Adverse event [Unknown]
  - Pyrexia [Unknown]
  - Drug effect less than expected [Unknown]
